FAERS Safety Report 4402376-8 (Version None)
Quarter: 2004Q3

REPORT INFORMATION
  Report Type: 
  Country: None (occurrence: None)
  Receive Date: 20040716
  Receipt Date: 20040705
  Transmission Date: 20050211
  Serious: Yes (Hospitalization)
  Sender: FDA-Public Use
  Company Number: PANC00304002197

PATIENT
  Age: 62 Year
  Sex: Female
  Weight: 66 kg

DRUGS (4)
  1. CREON [Suspect]
     Indication: ILL-DEFINED DISORDER
     Dosage: 5 DF DAILY PO
     Route: 048
  2. PREVISCAN (FLUINDIONE) [Suspect]
     Indication: ILL-DEFINED DISORDER
     Dosage: SEE IMAGE
     Route: 048
     Dates: start: 20040101, end: 20040101
  3. PREVISCAN (FLUINDIONE) [Suspect]
     Indication: ILL-DEFINED DISORDER
     Dosage: SEE IMAGE
     Route: 048
     Dates: start: 20040507, end: 20040101
  4. PREVISCAN (FLUINDIONE) [Suspect]
     Indication: ILL-DEFINED DISORDER
     Dosage: SEE IMAGE
     Route: 048
     Dates: start: 20040101

REACTIONS (4)
  - ARTERIAL THROMBOSIS LIMB [None]
  - DRUG INEFFECTIVE [None]
  - DRUG INTERACTION [None]
  - PERIPHERAL ISCHAEMIA [None]
